FAERS Safety Report 24037676 (Version 1)
Quarter: 2024Q3

REPORT INFORMATION
  Report Type: Spontaneous
  Country: JP (occurrence: JP)
  Receive Date: 20240702
  Receipt Date: 20240702
  Transmission Date: 20241017
  Serious: Yes (Other)
  Sender: STRIDES
  Company Number: JP-STRIDES ARCOLAB LIMITED-2024SP007682

PATIENT
  Age: 84 Year
  Sex: Male

DRUGS (1)
  1. AMPICILLIN TRIHYDRATE [Suspect]
     Active Substance: AMPICILLIN TRIHYDRATE
     Indication: Enterococcal infection
     Dosage: UNK
     Route: 065

REACTIONS (1)
  - Toxic encephalopathy [Recovered/Resolved]
